FAERS Safety Report 7258308-0 (Version None)
Quarter: 2011Q1

REPORT INFORMATION
  Report Type: 
  Country: None (occurrence: None)
  Receive Date: 20110129
  Receipt Date: 20100721
  Transmission Date: 20110831
  Serious: No
  Sender: FDA-Public Use
  Company Number: US-ABBOTT-10P-163-0660373-00

PATIENT
  Sex: Male
  Weight: 106.69 kg

DRUGS (5)
  1. ATENOLOL [Concomitant]
     Indication: HYPERTENSION
  2. HUMIRA [Suspect]
     Indication: PSORIASIS
     Route: 058
  3. HUMIRA [Suspect]
     Indication: PSORIATIC ARTHROPATHY
  4. WARFARIN SODIUM [Concomitant]
     Indication: PRODUCT USED FOR UNKNOWN INDICATION
  5. LANPRAZOLE [Concomitant]
     Indication: GASTROOESOPHAGEAL REFLUX DISEASE

REACTIONS (5)
  - HUMERUS FRACTURE [None]
  - FALL [None]
  - MUSCULOSKELETAL PAIN [None]
  - DRUG DOSE OMISSION [None]
  - ARTHRALGIA [None]
